FAERS Safety Report 14313560 (Version 1)
Quarter: 2017Q4

REPORT INFORMATION
  Report Type: Report from Study
  Country: US (occurrence: US)
  Receive Date: 20171221
  Receipt Date: 20171221
  Transmission Date: 20180321
  Serious: Yes (Other)
  Sender: FDA-Public Use
  Company Number: US-PFIZER INC-2017543485

PATIENT
  Age: 31 Week

DRUGS (9)
  1. VITAMIN D /00107901/ [Concomitant]
     Active Substance: ERGOCALCIFEROL
     Dosage: 482 IU, DAILY
  2. FUROSEMIDE. [Suspect]
     Active Substance: FUROSEMIDE
     Dosage: 2.4 MG/KG, DAILY
  3. PHOSPHORUS [Concomitant]
     Active Substance: PHOSPHORUS
     Dosage: 61 MG/KG, DAILY
  4. VITAMIN D /00107901/ [Concomitant]
     Active Substance: ERGOCALCIFEROL
     Dosage: 496 IU, DAILY
  5. FUROSEMIDE. [Suspect]
     Active Substance: FUROSEMIDE
     Indication: COR PULMONALE
     Dosage: 1.9 MG/KG, DAILY
  6. PHOSPHORUS [Concomitant]
     Active Substance: PHOSPHORUS
     Dosage: 28 MG/KG, DAILY
  7. CALCIUM [Concomitant]
     Active Substance: CALCIUM
     Dosage: 56 MG/KG, DAILY
  8. CALCIUM [Concomitant]
     Active Substance: CALCIUM
     Dosage: 83 MG/KG, DAILY
  9. MAGNESIUM [Concomitant]
     Active Substance: MAGNESIUM
     Dosage: 2.0 MG/KG, DAILY

REACTIONS (4)
  - Hypercalciuria [Unknown]
  - Nephrocalcinosis [Unknown]
  - Hyperparathyroidism [Unknown]
  - Osteopenia [Unknown]
